FAERS Safety Report 8326092-5 (Version None)
Quarter: 2012Q2

REPORT INFORMATION
  Report Type: 
  Country: None (occurrence: None)
  Receive Date: 20120501
  Receipt Date: 20120427
  Transmission Date: 20120825
  Serious: Yes (Other)
  Sender: FDA-Public Use
  Company Number: JP-GLAXOSMITHKLINE-B0798838A

PATIENT
  Age: 61 Year
  Sex: Female

DRUGS (1)
  1. ARIXTRA [Suspect]
     Indication: EMBOLISM VENOUS
     Dosage: 2.5MG PER DAY
     Route: 058
     Dates: start: 20120407, end: 20120411

REACTIONS (2)
  - SCIATIC NERVE PALSY [None]
  - INCISION SITE HAEMATOMA [None]
